FAERS Safety Report 7268873-5 (Version None)
Quarter: 2011Q1

REPORT INFORMATION
  Report Type: 
  Country: None (occurrence: None)
  Receive Date: 20110201
  Receipt Date: 20110126
  Transmission Date: 20110831
  Serious: Yes (Other)
  Sender: FDA-Public Use
  Company Number: ZA-PFIZER INC-2011013801

PATIENT
  Age: 56 Year
  Sex: Female

DRUGS (10)
  1. STILNOX [Concomitant]
     Dosage: UNK
     Route: 048
     Dates: start: 20090101
  2. LYRICA [Suspect]
     Indication: NEURALGIA
     Dosage: 75 MG, 1X/DAY
     Route: 048
     Dates: start: 20110101
  3. CRESTOR [Concomitant]
     Dosage: UNK
     Route: 048
     Dates: start: 20060101
  4. TREPILINE [Concomitant]
     Dosage: UNK
     Route: 048
     Dates: start: 20100101
  5. IVEDAL [Concomitant]
     Dosage: UNK
     Route: 048
     Dates: start: 20100101
  6. EVOREL [Concomitant]
     Route: 061
  7. ASPAVOR [Concomitant]
     Dosage: UNK
     Route: 048
     Dates: start: 20050101
  8. ASPIRIN [Concomitant]
     Dosage: 81 MG, UNK
     Route: 048
  9. BRAZEPAM [Concomitant]
     Dosage: UNK
     Route: 048
     Dates: start: 20090101
  10. CILIFT [Concomitant]
     Dosage: UNK
     Route: 048
     Dates: start: 20090101

REACTIONS (7)
  - ARTERIAL RUPTURE [None]
  - SKIN SWELLING [None]
  - PAIN OF SKIN [None]
  - SKIN DISCOLOURATION [None]
  - PAIN IN EXTREMITY [None]
  - PURPURA [None]
  - OCULAR HYPERAEMIA [None]
